FAERS Safety Report 4993563-9 (Version None)
Quarter: 2006Q2

REPORT INFORMATION
  Report Type: 
  Country: None (occurrence: None)
  Receive Date: 20060504
  Receipt Date: 20060504
  Transmission Date: 20061013
  Serious: Yes (Hospitalization)
  Sender: FDA-Public Use
  Company Number: None

PATIENT
  Age: 78 Year
  Sex: Male
  Weight: 100 kg

DRUGS (15)
  1. WARFARIN SODIUM [Suspect]
     Indication: PROPHYLAXIS
     Dosage: 5MG  DAILY  PO
     Route: 048
     Dates: start: 20060118, end: 20060119
  2. ASPIRIN [Suspect]
     Indication: CARDIAC DISORDER
     Dosage: 81MG PO DAILY  (DURATION: CHRONIC PRIOR TO ADMIT)
     Route: 048
  3. ATENOLOL [Concomitant]
  4. IRBESARTAN [Concomitant]
  5. OXYCODONE [Concomitant]
  6. PROTONIX [Concomitant]
  7. MIRAPEX [Concomitant]
  8. ZOCOR [Concomitant]
  9. DETROL LA [Concomitant]
  10. MOM [Concomitant]
  11. LASIX [Concomitant]
  12. CEFAZOLIN [Concomitant]
  13. TOBRAMYCIN [Concomitant]
  14. LEVAQUIN [Concomitant]
  15. ZOSYN [Concomitant]

REACTIONS (7)
  - GASTRITIS EROSIVE [None]
  - HAEMATEMESIS [None]
  - HAEMATOCRIT DECREASED [None]
  - HAEMOGLOBIN DECREASED [None]
  - INTERNATIONAL NORMALISED RATIO DECREASED [None]
  - OESOPHAGITIS [None]
  - UPPER GASTROINTESTINAL HAEMORRHAGE [None]
